FAERS Safety Report 8854966 (Version 1)
Quarter: 2012Q4

REPORT INFORMATION
  Report Type: 
  Country: US (occurrence: US)
  Receive Date: 20121023
  Receipt Date: 20121023
  Transmission Date: 20130627
  Serious: No
  Sender: FDA-Public Use
  Company Number: US-B.I. PHARMACEUTICALS,INC./RIDGEFIELD-2012-BP-24931BP

PATIENT
  Sex: Female
  Weight: 82 kg

DRUGS (4)
  1. MICARDIS [Suspect]
     Indication: HYPERTENSION
     Dosage: 40 mg
     Route: 048
     Dates: start: 2006
  2. LUTEIN [Concomitant]
     Route: 048
  3. BILBERRY [Concomitant]
     Dosage: 1000 mg
     Route: 048
  4. ALBUTEROL [Concomitant]
     Indication: ASTHMA
     Route: 055

REACTIONS (8)
  - Back pain [Not Recovered/Not Resolved]
  - Urticaria [Not Recovered/Not Resolved]
  - Pruritus generalised [Not Recovered/Not Resolved]
  - Headache [Recovered/Resolved]
  - Muscle spasms [Recovered/Resolved]
  - Pollakiuria [Not Recovered/Not Resolved]
  - Poor quality sleep [Not Recovered/Not Resolved]
  - Irritable bowel syndrome [Not Recovered/Not Resolved]
